FAERS Safety Report 10353417 (Version 2)
Quarter: 2014Q4

REPORT INFORMATION
  Report Type: Spontaneous
  Country: DE (occurrence: DE)
  Receive Date: 20140731
  Receipt Date: 20141212
  Transmission Date: 20150528
  Serious: Yes (Life-Threatening, Hospitalization, Other)
  Sender: FDA-Public Use
  Company Number: DE-BIOGENIDEC-2014BI073256

PATIENT
  Age: 33 Year
  Sex: Female

DRUGS (5)
  1. TYSABRI [Suspect]
     Active Substance: NATALIZUMAB
     Indication: MULTIPLE SCLEROSIS
     Route: 042
     Dates: start: 20140524, end: 20140524
  2. DIPIDOLOR [Concomitant]
     Active Substance: PIRITRAMIDE
     Indication: PAIN
     Route: 058
     Dates: end: 20140703
  3. TEMGESIC FORTE [Concomitant]
     Indication: PAIN
     Route: 060
     Dates: end: 20140703
  4. VALORON [Concomitant]
     Active Substance: TILIDINE HYDROCHLORIDE
     Indication: PAIN
     Route: 048
     Dates: end: 20140703
  5. L DOPA [Concomitant]
     Active Substance: LEVODOPA
     Indication: PRODUCT USED FOR UNKNOWN INDICATION
     Route: 048
     Dates: start: 2012

REACTIONS (9)
  - Immune system disorder [Recovered/Resolved]
  - Diarrhoea [Recovered/Resolved]
  - Bacterial sepsis [Recovered/Resolved with Sequelae]
  - Pain [Recovered/Resolved]
  - Thrombocytopenia [Unknown]
  - Nausea [Recovered/Resolved]
  - Splenomegaly [Unknown]
  - Alanine aminotransferase increased [Recovered/Resolved]
  - Gamma-glutamyltransferase increased [Recovered/Resolved]

NARRATIVE: CASE EVENT DATE: 201405
